FAERS Safety Report 19110567 (Version 1)
Quarter: 2021Q2

REPORT INFORMATION
  Report Type: Spontaneous
  Country: NL (occurrence: NL)
  Receive Date: 20210409
  Receipt Date: 20210409
  Transmission Date: 20210717
  Serious: Yes (Death, Other)
  Sender: FDA-Public Use
  Company Number: NL-ABBVIE-21K-114-3852500-00

PATIENT
  Sex: Male

DRUGS (7)
  1. CYTARABINE. [Concomitant]
     Active Substance: CYTARABINE
     Indication: PRODUCT USED FOR UNKNOWN INDICATION
     Dosage: 20 MILLIGRAM PER METER SQUARE
  2. AUGMENTIN [Concomitant]
     Active Substance: AMOXICILLIN\CLAVULANATE POTASSIUM
     Indication: PRODUCT USED FOR UNKNOWN INDICATION
  3. VENETOCLAX. [Suspect]
     Active Substance: VENETOCLAX
     Dosage: DAY 4 TO 28 600MG
     Route: 048
     Dates: start: 2021, end: 2021
  4. VENETOCLAX. [Suspect]
     Active Substance: VENETOCLAX
     Dosage: DAY2 200MG
     Route: 048
     Dates: start: 2021, end: 2021
  5. VENETOCLAX. [Suspect]
     Active Substance: VENETOCLAX
     Dosage: DAY3 400MG
     Route: 048
     Dates: start: 2021, end: 2021
  6. VENETOCLAX. [Suspect]
     Active Substance: VENETOCLAX
     Indication: ACUTE MYELOID LEUKAEMIA
     Dosage: DAY1 100 MG
     Route: 048
     Dates: start: 202102, end: 202102
  7. EXJADE [Concomitant]
     Active Substance: DEFERASIROX
     Indication: SERUM FERRITIN

REACTIONS (5)
  - Death [Fatal]
  - Febrile neutropenia [Unknown]
  - Haematoma [Unknown]
  - Off label use [Unknown]
  - Injury [Unknown]

NARRATIVE: CASE EVENT DATE: 20210405
